APPROVED DRUG PRODUCT: METOPROLOL TARTRATE
Active Ingredient: METOPROLOL TARTRATE
Strength: 75MG
Dosage Form/Route: TABLET;ORAL
Application: A200981 | Product #005 | TE Code: AB
Applicant: RUBICON RESEARCH LTD
Approved: Aug 21, 2019 | RLD: No | RS: No | Type: RX